FAERS Safety Report 9132824 (Version 1)
Quarter: 2013Q1

REPORT INFORMATION
  Report Type: Spontaneous
  Country: US (occurrence: US)
  Receive Date: 20130301
  Receipt Date: 20130301
  Transmission Date: 20140127
  Serious: No
  Sender: FDA-Public Use
  Company Number: US-BAYER-2013-026265

PATIENT
  Sex: Male

DRUGS (2)
  1. ALEVE CAPLET/TABLET,MIDOL EXTENDED RELIEF CAPLET [Suspect]
     Indication: ANALGESIC THERAPY
     Dosage: 2 DF, UNK
     Route: 048
     Dates: start: 2012, end: 2012
  2. BLOOD PRESSURE MEDICATION (NOS) [Concomitant]

REACTIONS (1)
  - Blood pressure increased [None]
